FAERS Safety Report 6233595-6 (Version None)
Quarter: 2009Q2

REPORT INFORMATION
  Report Type: 
  Country: None (occurrence: None)
  Receive Date: 20090615
  Receipt Date: 20090610
  Transmission Date: 20091009
  Serious: Yes (Death)
  Sender: FDA-Public Use
  Company Number: 2009US002369

PATIENT
  Age: 68 Year
  Sex: Female

DRUGS (1)
  1. PROGRAF [Suspect]
     Indication: TRANSPLANT

REACTIONS (1)
  - DEATH [None]
